FAERS Safety Report 13434287 (Version 1)
Quarter: 2017Q2

REPORT INFORMATION
  Report Type: Spontaneous
  Country: US (occurrence: US)
  Receive Date: 20170413
  Receipt Date: 20170413
  Transmission Date: 20170830
  Serious: No
  Sender: FDA-Public Use
  Company Number: US-FERRINGPH-2016FE02829

PATIENT
  Sex: Male
  Weight: 68.27 kg

DRUGS (1)
  1. FIRMAGON [Suspect]
     Active Substance: DEGARELIX ACETATE
     Indication: PROSTATE CANCER
     Dosage: UNK, MONTHLY
     Route: 065

REACTIONS (3)
  - Hot flush [Not Recovered/Not Resolved]
  - Prostatic specific antigen decreased [Not Recovered/Not Resolved]
  - Fatigue [Not Recovered/Not Resolved]
